FAERS Safety Report 6446171-7 (Version None)
Quarter: 2009Q4

REPORT INFORMATION
  Report Type: 
  Country: None (occurrence: None)
  Receive Date: 20091119
  Receipt Date: 20091110
  Transmission Date: 20100525
  Serious: Yes (Other)
  Sender: FDA-Public Use
  Company Number: MX-ASTRAZENECA-2009SE25664

PATIENT
  Age: 71 Year
  Sex: Male
  Weight: 63 kg

DRUGS (6)
  1. ESOMEPRAZOLE [Suspect]
     Indication: PROPHYLAXIS AGAINST GASTROINTESTINAL ULCER
     Route: 048
     Dates: start: 20090221, end: 20091014
  2. CELECOXIB:IBUPROFEN/NAPROXEN:PLACEBO (CODE NOT BROKEN) [Suspect]
     Indication: ARTHRITIS
     Route: 048
     Dates: start: 20090221, end: 20091014
  3. CHLOROQUINE PHOSPHATE [Concomitant]
     Dates: start: 20080501
  4. HIDROSMIN [Concomitant]
     Dates: start: 20070101
  5. CALCIUM [Concomitant]
     Dates: start: 20080501
  6. METOPROLOL [Concomitant]
     Dates: start: 20080501

REACTIONS (1)
  - DRUG ERUPTION [None]
